FAERS Safety Report 12756994 (Version 3)
Quarter: 2017Q2

REPORT INFORMATION
  Report Type: Spontaneous
  Country: US (occurrence: US)
  Receive Date: 20160918
  Receipt Date: 20170424
  Transmission Date: 20170830
  Serious: No
  Sender: FDA-Public Use
  Company Number: US-TEVA-683245USA

PATIENT
  Age: 57 Year
  Sex: Female

DRUGS (8)
  1. PROVERA [Concomitant]
     Active Substance: MEDROXYPROGESTERONE ACETATE
  2. LEXAPRO [Concomitant]
     Active Substance: ESCITALOPRAM OXALATE
  3. CELEXA [Concomitant]
     Active Substance: CITALOPRAM HYDROBROMIDE
  4. ACYCLOVIR. [Concomitant]
     Active Substance: ACYCLOVIR
  5. VITAMIN D3 [Concomitant]
     Active Substance: CHOLECALCIFEROL
  6. COPAXONE [Suspect]
     Active Substance: GLATIRAMER ACETATE
     Indication: MULTIPLE SCLEROSIS
     Dosage: 20 MILLIGRAM/MILLILITERS DAILY;
     Route: 058
     Dates: start: 20090924
  7. CLONAZEPAM. [Concomitant]
     Active Substance: CLONAZEPAM
  8. ESTRADIOL. [Concomitant]
     Active Substance: ESTRADIOL

REACTIONS (6)
  - Fatigue [Not Recovered/Not Resolved]
  - Amnesia [Unknown]
  - Clumsiness [Unknown]
  - Headache [Not Recovered/Not Resolved]
  - Depression [Not Recovered/Not Resolved]
  - Fall [Unknown]

NARRATIVE: CASE EVENT DATE: 201607
